FAERS Safety Report 5629646-X (Version None)
Quarter: 2008Q1

REPORT INFORMATION
  Report Type: 
  Country: None (occurrence: None)
  Receive Date: 20080218
  Receipt Date: 20080214
  Transmission Date: 20080703
  Serious: Yes (Hospitalization, Other)
  Sender: FDA-Public Use
  Company Number: A0705594A

PATIENT
  Age: 35 Year
  Sex: Female
  Weight: 49.1 kg

DRUGS (3)
  1. ZYBAN [Suspect]
     Dosage: 150MG TWICE PER DAY
     Route: 048
     Dates: start: 20071231, end: 20080114
  2. UNKNOWN [Concomitant]
  3. CYCLEN 21 [Concomitant]

REACTIONS (4)
  - ANGIOEDEMA [None]
  - DYSPNOEA [None]
  - RASH GENERALISED [None]
  - URTICARIA [None]
